FAERS Safety Report 6516899-9 (Version None)
Quarter: 2009Q4

REPORT INFORMATION
  Report Type: 
  Country: None (occurrence: None)
  Receive Date: 20091223
  Receipt Date: 20091213
  Transmission Date: 20100525
  Serious: Yes (Hospitalization, Other)
  Sender: FDA-Public Use
  Company Number: US-ABBOTT-09P-163-0614210-00

PATIENT
  Sex: Female
  Weight: 72.64 kg

DRUGS (22)
  1. HUMIRA [Suspect]
     Indication: CROHN'S DISEASE
     Route: 050
     Dates: start: 20070930, end: 20080307
  2. HUMIRA [Suspect]
     Route: 050
     Dates: start: 20070615, end: 20070718
  3. VITAMIN TAB [Concomitant]
     Indication: DRUG USE FOR UNKNOWN INDICATION
     Route: 048
  4. FOLIC ACID [Concomitant]
     Indication: DRUG USE FOR UNKNOWN INDICATION
     Route: 048
  5. PREDNISONE [Concomitant]
     Indication: CROHN'S DISEASE
     Route: 048
     Dates: start: 20070902
  6. PREDNISONE [Concomitant]
     Route: 048
     Dates: start: 20070615, end: 20070901
  7. FLAGYL [Concomitant]
     Indication: FISTULA
     Route: 048
  8. CEPHALEXIN [Concomitant]
     Indication: ANTIBIOTIC PROPHYLAXIS
     Route: 048
     Dates: start: 20071215, end: 20071222
  9. CEPHALEXIN [Concomitant]
     Route: 048
     Dates: start: 20080111, end: 20080121
  10. PERCOCET [Concomitant]
     Indication: PAIN
     Route: 048
  11. FLUZONE [Concomitant]
     Indication: DRUG USE FOR UNKNOWN INDICATION
     Route: 050
     Dates: start: 20071110, end: 20071110
  12. TYLENOL (CAPLET) [Concomitant]
     Indication: PAIN
     Route: 048
     Dates: end: 20080122
  13. TYLENOL (CAPLET) [Concomitant]
     Indication: CROHN'S DISEASE
  14. TUMS [Concomitant]
     Indication: DYSPEPSIA
     Route: 048
     Dates: start: 20071115
  15. TUMS [Concomitant]
     Indication: PAIN
     Dates: start: 20070915, end: 20070915
  16. LORTAB [Concomitant]
     Indication: PAIN
     Route: 048
     Dates: start: 20080124, end: 20080207
  17. LORTAB [Concomitant]
  18. CAFFEINE [Concomitant]
     Indication: DRUG USE FOR UNKNOWN INDICATION
     Dosage: 1.5 SERVING
     Route: 048
  19. RED BULL ENERGY DRINK [Concomitant]
     Indication: DRUG USE FOR UNKNOWN INDICATION
  20. ALCOHOL [Concomitant]
     Indication: DRUG USE FOR UNKNOWN INDICATION
     Dosage: 12 SERVINGS
     Dates: start: 20070704, end: 20070704
  21. ALCOHOL [Concomitant]
     Dosage: 5 SERVINGS
     Dates: end: 20090703
  22. ALCOHOL [Concomitant]
     Dosage: 5 SERVINGS
     Dates: start: 20070705, end: 20070718

REACTIONS (5)
  - ABSCESS [None]
  - ANAL ABSCESS [None]
  - DEHYDRATION [None]
  - FISTULA [None]
  - RESPIRATORY TRACT INFECTION [None]
